FAERS Safety Report 8382926-X (Version None)
Quarter: 2012Q2

REPORT INFORMATION
  Report Type: 
  Country: None (occurrence: None)
  Receive Date: 20120524
  Receipt Date: 20120517
  Transmission Date: 20120825
  Serious: Yes (Other)
  Sender: FDA-Public Use
  Company Number: US-PFIZER INC-2012021176

PATIENT
  Sex: Female

DRUGS (3)
  1. LATANOPROST [Suspect]
     Indication: GLAUCOMA
     Dosage: 1 GTT IN EACH EYE DAILY
     Route: 047
     Dates: start: 20110601
  2. AZOPT [Suspect]
     Dosage: UNK, 2X/DAY EACH EYE
  3. LATANOPROST [Suspect]
     Dosage: UNK

REACTIONS (3)
  - LACRIMATION INCREASED [None]
  - CONJUNCTIVITIS BACTERIAL [None]
  - EYE IRRITATION [None]
